FAERS Safety Report 9708828 (Version 2)
Quarter: 2013Q4

REPORT INFORMATION
  Report Type: Spontaneous
  Country: KR (occurrence: None)
  Receive Date: 20131122
  Receipt Date: 20131219
  Transmission Date: 20140711
  Serious: Yes (Other)
  Sender: FDA-Public Use
  Company Number: SYM-2013-12985

PATIENT
  Age: 45 Year
  Sex: Male

DRUGS (3)
  1. FLUOROURACIL [Suspect]
     Indication: COLON CANCER
  2. OXALIPLATIN [Suspect]
     Indication: COLON CANCER
  3. FOLINIC ACID [Suspect]
     Indication: COLON CANCER

REACTIONS (6)
  - Hepatic fibrosis [None]
  - Portal hypertension [None]
  - Splenomegaly [None]
  - Hepatic necrosis [None]
  - Thrombocytopenia [None]
  - Metastases to liver [None]
